FAERS Safety Report 9136190 (Version 2)
Quarter: 2013Q2

REPORT INFORMATION
  Report Type: Spontaneous
  Country: US (occurrence: US)
  Receive Date: 20130304
  Receipt Date: 20130404
  Transmission Date: 20140414
  Serious: Yes (Life-Threatening, Other)
  Sender: FDA-Public Use
  Company Number: US-GLAXOSMITHKLINE-A1013542A

PATIENT
  Age: 55 Year
  Sex: Male

DRUGS (12)
  1. VENTOLIN [Suspect]
     Indication: BRONCHITIS
     Route: 055
     Dates: start: 20130127
  2. FLONASE [Concomitant]
  3. TESSALON [Concomitant]
  4. NEBULIZER [Concomitant]
  5. HYPOTONE [Concomitant]
  6. NIFEDIPINE [Concomitant]
  7. PRAVASTATIN [Concomitant]
  8. UNKNOWN DRUG FOR ANXIETY [Concomitant]
     Indication: ANXIETY
  9. AUGMENTIN [Concomitant]
  10. SEROQUEL [Concomitant]
  11. PROTONIX [Concomitant]
  12. CELEXA [Concomitant]

REACTIONS (2)
  - Syncope [Recovered/Resolved]
  - Device misuse [Unknown]
